FAERS Safety Report 9398580 (Version 2)
Quarter: 2013Q3

REPORT INFORMATION
  Report Type: Spontaneous
  Country: IT (occurrence: IT)
  Receive Date: 20130712
  Receipt Date: 20130719
  Transmission Date: 20140515
  Serious: Yes (Life-Threatening)
  Sender: FDA-Public Use
  Company Number: IT-B.I. PHARMACEUTICALS,INC./RIDGEFIELD-2013-BI-20337BY

PATIENT
  Age: 86 Year
  Sex: Male

DRUGS (10)
  1. TELMISARTAN [Suspect]
     Indication: ESSENTIAL HYPERTENSION
     Dosage: DAILY DOSE: 80/12.5
     Route: 048
  2. METFORMIN [Suspect]
     Indication: TYPE 2 DIABETES MELLITUS
     Dosage: 1000 MG
     Route: 048
     Dates: start: 20090101, end: 20130527
  3. DICLOFENAC [Suspect]
     Indication: BACK PAIN
     Route: 030
     Dates: start: 20130524, end: 20130527
  4. CITALOPRAM [Concomitant]
     Indication: DEPRESSION
     Route: 048
  5. OMEPRAZOLE [Concomitant]
     Route: 048
  6. CARVEDILOL [Concomitant]
     Indication: HYPERTENSION
     Route: 048
  7. INEGY [Concomitant]
     Indication: DYSLIPIDAEMIA
     Route: 048
  8. FISIOTENS [Concomitant]
     Indication: HYPERTENSION
     Route: 048
  9. ASCRIPTIN [Concomitant]
     Indication: THROMBOSIS PROPHYLAXIS
     Dosage: 450 MG
     Route: 048
  10. LASIX [Concomitant]
     Indication: HYPERTENSION
     Route: 048

REACTIONS (3)
  - Renal failure acute [Recovered/Resolved]
  - Lactic acidosis [Recovered/Resolved]
  - Drug interaction [Recovered/Resolved]
